FAERS Safety Report 8573905-8 (Version None)
Quarter: 2012Q3

REPORT INFORMATION
  Report Type: 
  Country: None (occurrence: None)
  Receive Date: 20120806
  Receipt Date: 20120529
  Transmission Date: 20120928
  Serious: No
  Sender: FDA-Public Use
  Company Number: US-GLAXOSMITHKLINE-A0980085A

PATIENT

DRUGS (2)
  1. DULERA [Suspect]
     Route: 055
  2. FLUTICASONE PROPIONATE [Suspect]

REACTIONS (1)
  - DRUG ADMINISTRATION ERROR [None]
